FAERS Safety Report 19552102 (Version 4)
Quarter: 2021Q3

REPORT INFORMATION
  Report Type: Other
  Country: US (occurrence: US)
  Receive Date: 20210715
  Receipt Date: 20210817
  Transmission Date: 20211014
  Serious: Yes (Hospitalization, Other)
  Sender: FDA-Public Use
  Company Number: US-ROCHE-2865334

PATIENT
  Sex: Male

DRUGS (2)
  1. ESBRIET [Suspect]
     Active Substance: PIRFENIDONE
     Indication: IDIOPATHIC PULMONARY FIBROSIS
     Dosage: THREE TABLETS BY MOUTH THREE TIMES A DAY
     Route: 048
     Dates: start: 20210623
  2. TRULICITY [Concomitant]
     Active Substance: DULAGLUTIDE

REACTIONS (14)
  - Pleurisy [Unknown]
  - Scrotal inflammation [Recovered/Resolved]
  - Cough [Unknown]
  - Agitation [Not Recovered/Not Resolved]
  - Vomiting [Unknown]
  - Chest pain [Unknown]
  - Malaise [Unknown]
  - Nausea [Unknown]
  - Pneumonia [Unknown]
  - Hypoaesthesia [Unknown]
  - Headache [Not Recovered/Not Resolved]
  - Abdominal discomfort [Not Recovered/Not Resolved]
  - Vomiting [Not Recovered/Not Resolved]
  - Decreased appetite [Unknown]
